FAERS Safety Report 19447417 (Version 1)
Quarter: 2021Q2

REPORT INFORMATION
  Report Type: Spontaneous
  Country: US (occurrence: US)
  Receive Date: 20210621
  Receipt Date: 20210621
  Transmission Date: 20210717
  Serious: No
  Sender: FDA-Public Use
  Company Number: None

PATIENT
  Age: 83 Year
  Sex: Female

DRUGS (12)
  1. METHOTREXATE. [Suspect]
     Active Substance: METHOTREXATE
  2. VITAMIN D [Concomitant]
     Active Substance: VITAMIN D NOS
  3. MAGNESIUM [Concomitant]
     Active Substance: MAGNESIUM
  4. TYLENOL [Concomitant]
     Active Substance: ACETAMINOPHEN
  5. CRANBERRY. [Concomitant]
     Active Substance: CRANBERRY
  6. FOLIC ACID. [Concomitant]
     Active Substance: FOLIC ACID
  7. LOW DOSE ASPIRIN [Concomitant]
     Active Substance: ASPIRIN
  8. LOSARTAN. [Concomitant]
     Active Substance: LOSARTAN
  9. VITAMIN E [Concomitant]
     Active Substance: .ALPHA.-TOCOPHEROL
  10. BRIMONIDINE [Concomitant]
     Active Substance: BRIMONIDINE TARTRATE
  11. FISH OIL [Concomitant]
     Active Substance: FISH OIL
  12. COENZYME Q10 [Concomitant]
     Active Substance: DIETARY SUPPLEMENT\UBIDECARENONE

REACTIONS (7)
  - Rhinorrhoea [None]
  - Nocturia [None]
  - Drug ineffective [None]
  - Malaise [None]
  - Hallucination, visual [None]
  - Middle insomnia [None]
  - Feeling abnormal [None]

NARRATIVE: CASE EVENT DATE: 20210324
